FAERS Safety Report 4783533-8 (Version None)
Quarter: 2005Q3

REPORT INFORMATION
  Report Type: 
  Country: None (occurrence: None)
  Receive Date: 20050914
  Receipt Date: 20050706
  Transmission Date: 20060218
  Serious: Yes (Life-Threatening, Hospitalization)
  Sender: FDA-Public Use
  Company Number: 163-20785-05070043

PATIENT
  Age: 64 Year
  Sex: Male

DRUGS (4)
  1. THALOMID [Suspect]
     Indication: MULTIPLE MYELOMA
     Dosage: 400 MG, QHS, ORAL
     Route: 048
     Dates: start: 20030101, end: 20050301
  2. CYTOXAN [Concomitant]
  3. BIAXIN [Concomitant]
  4. DEXAMETHASONE [Concomitant]

REACTIONS (2)
  - PNEUMONIA VIRAL [None]
  - VARICELLA [None]
